FAERS Safety Report 4881725-0 (Version None)
Quarter: 2006Q1

REPORT INFORMATION
  Report Type: 
  Country: None (occurrence: None)
  Receive Date: 20060116
  Receipt Date: 20060106
  Transmission Date: 20060701
  Serious: Yes (Other)
  Sender: FDA-Public Use
  Company Number: RO-ROCHE-431027

PATIENT
  Age: 46 Year
  Sex: Male

DRUGS (1)
  1. ROFERON-A [Suspect]
     Route: 058
     Dates: start: 20050115, end: 20051215

REACTIONS (2)
  - HEPATIC NEOPLASM [None]
  - NEOPLASM SKIN [None]
